FAERS Safety Report 18612386 (Version 1)
Quarter: 2020Q4

REPORT INFORMATION
  Report Type: Spontaneous
  Country: US (occurrence: US)
  Receive Date: 20201214
  Receipt Date: 20201214
  Transmission Date: 20210114
  Serious: Yes (Other)
  Sender: FDA-Public Use
  Company Number: US-PFIZER INC-2019558683

PATIENT
  Age: 80 Year
  Sex: Female
  Weight: 70.76 kg

DRUGS (5)
  1. PRISTIQ EXTENDED-RELEASE [Suspect]
     Active Substance: DESVENLAFAXINE SUCCINATE
     Indication: OBSESSIVE-COMPULSIVE DISORDER
     Dosage: 150 MG, 1X/DAY [50MG AROUND 11- 11:30AM, 100MG WITH DINNER]
     Route: 048
  2. ASPIRIN [ACETYLSALICYLIC ACID] [Concomitant]
     Active Substance: ASPIRIN
     Dosage: 81 MG, 1X/DAY
     Route: 048
  3. OMEGA-3 NOS [Concomitant]
     Active Substance: OMEGA-3 FATTY ACIDS
     Indication: SUPPLEMENTATION THERAPY
     Dosage: UNK, 1X/DAY
     Route: 048
  4. CARVEDILOL. [Concomitant]
     Active Substance: CARVEDILOL
     Indication: BLOOD PRESSURE ABNORMAL
     Dosage: UNK, 2X/DAY
     Route: 048
  5. INOSITOL [Concomitant]
     Active Substance: INOSITOL
     Indication: DISTURBANCE IN ATTENTION
     Dosage: UNK, 1X/DAY
     Route: 048

REACTIONS (3)
  - Dementia [Unknown]
  - Off label use [Unknown]
  - Anaemia [Unknown]
